FAERS Safety Report 10027423 (Version 2)
Quarter: 2014Q2

REPORT INFORMATION
  Report Type: Spontaneous
  Country: PT (occurrence: None)
  Receive Date: 20140318
  Receipt Date: 20140407
  Transmission Date: 20141212
  Serious: Yes (Other)
  Sender: FDA-Public Use
  Company Number: SYM-2014-18468

PATIENT
  Age: 36 Year
  Sex: Male

DRUGS (2)
  1. ELONTRIL [Suspect]
     Indication: DEPRESSION
     Dosage: 1 IN 1 D
     Route: 048
  2. VALDOXAN [Concomitant]

REACTIONS (4)
  - VIIth nerve paralysis [None]
  - Hypersensitivity [None]
  - Weight decreased [None]
  - Burning sensation [None]
